FAERS Safety Report 12910050 (Version 1)
Quarter: 2016Q4

REPORT INFORMATION
  Report Type: Spontaneous
  Country: US (occurrence: US)
  Receive Date: 20161102
  Receipt Date: 20161102
  Transmission Date: 20170207
  Serious: No
  Sender: FDA-Public Use
  Company Number: None

PATIENT
  Age: 86 Year
  Sex: Female

DRUGS (3)
  1. POSTURE-D (CALCIUM WITH VITAMIN D, MAGNESIUM) [Concomitant]
  2. FUROSEMIDE. [Concomitant]
     Active Substance: FUROSEMIDE
  3. PROLIA [Suspect]
     Active Substance: DENOSUMAB
     Indication: OSTEOPOROSIS
     Dosage: 60MG EVERY 6 MONTHS SUBCUTANEOUSLY
     Route: 058
     Dates: start: 20141002

REACTIONS (2)
  - Gait disturbance [None]
  - Transient ischaemic attack [None]

NARRATIVE: CASE EVENT DATE: 20161101
